FAERS Safety Report 8764654 (Version 2)
Quarter: 2012Q4

REPORT INFORMATION
  Report Type: 
  Country: PE (occurrence: PE)
  Receive Date: 20120831
  Receipt Date: 20120907
  Transmission Date: 20130627
  Serious: Yes (Death, Life-Threatening, Other)
  Sender: FDA-Public Use
  Company Number: PE-ASTRAZENECA-2012SE64885

PATIENT
  Age: 72 Year
  Sex: Male

DRUGS (1)
  1. ATACAND PLUS [Suspect]
     Indication: HYPERTENSION
     Dosage: 16/12.5 MG, DAILY
     Route: 048
     Dates: start: 19970427

REACTIONS (3)
  - Cerebral haemorrhage [Fatal]
  - Coma [Unknown]
  - Pneumonia [Unknown]
